FAERS Safety Report 9871397 (Version 1)
Quarter: 2014Q1

REPORT INFORMATION
  Report Type: Spontaneous
  Country: IT (occurrence: IT)
  Receive Date: 20140205
  Receipt Date: 20140205
  Transmission Date: 20141002
  Serious: Yes (Other)
  Sender: FDA-Public Use
  Company Number: IT-WATSON-2014-01529

PATIENT
  Age: 58 Year
  Sex: Female

DRUGS (7)
  1. TRIAZOLAM (UNKNOWN) [Suspect]
     Indication: INSOMNIA
     Dosage: 7500 MG, TOTAL
     Route: 048
     Dates: start: 20131118, end: 20131118
  2. TRIAZOLAM (UNKNOWN) [Suspect]
     Dosage: 500 MG, DAILY
     Route: 048
  3. ALPRAZOLAM (UNKNOWN) [Suspect]
     Indication: INSOMNIA
     Dosage: 20 ML, TOTAL
     Route: 048
     Dates: start: 20131118, end: 20131118
  4. ALPRAZOLAM (UNKNOWN) [Suspect]
     Dosage: 30 GTT, PRN
     Route: 048
  5. LOSARTAN ALMUS [Concomitant]
     Indication: PRODUCT USED FOR UNKNOWN INDICATION
     Dosage: UNK
     Route: 065
  6. INDERAL [Concomitant]
     Indication: PRODUCT USED FOR UNKNOWN INDICATION
     Dosage: UNK
     Route: 065
  7. EFEXOR [Concomitant]
     Indication: PRODUCT USED FOR UNKNOWN INDICATION
     Dosage: 75 MG, DAILY
     Route: 048

REACTIONS (2)
  - Overdose [Recovering/Resolving]
  - Psychomotor skills impaired [Recovering/Resolving]
